FAERS Safety Report 5045418-1 (Version None)
Quarter: 2006Q3

REPORT INFORMATION
  Report Type: 
  Country: None (occurrence: None)
  Receive Date: 20060707
  Receipt Date: 20060628
  Transmission Date: 20061208
  Serious: Yes (Death)
  Sender: FDA-Public Use
  Company Number: IL-NOVOPROD-254500

PATIENT
  Age: 67 Year
  Sex: Male

DRUGS (3)
  1. NOVOSEVEN [Suspect]
     Indication: AORTIC ANEURYSM RUPTURE
     Dosage: 7.2 MG, UNK
     Route: 042
     Dates: start: 20060523
  2. NOVOSEVEN [Suspect]
     Dosage: 7.2 UNK, UNK
     Route: 042
     Dates: start: 20060523
  3. NOVOSEVEN [Suspect]
     Dosage: 7.2 UNK, UNK
     Route: 042
     Dates: start: 20060523

REACTIONS (1)
  - DEATH [None]
